FAERS Safety Report 21916519 (Version 1)
Quarter: 2023Q1

REPORT INFORMATION
  Report Type: Spontaneous
  Country: US (occurrence: None)
  Receive Date: 20230126
  Receipt Date: 20230126
  Transmission Date: 20230417
  Serious: No
  Sender: FDA-Public Use
  Company Number: None

PATIENT
  Age: 43 Year
  Sex: Male
  Weight: 100.24 kg

DRUGS (7)
  1. METHYLPREDNISOLONE [Suspect]
     Active Substance: METHYLPREDNISOLONE
     Indication: Pain
     Dates: start: 20151022, end: 20220408
  2. METHYLPREDNISOLONE [Suspect]
     Active Substance: METHYLPREDNISOLONE
     Indication: Arthralgia
  3. METHYLPREDNISOLONE [Suspect]
     Active Substance: METHYLPREDNISOLONE
     Indication: Arthralgia
  4. BUPIVACAINE [Suspect]
     Active Substance: BUPIVACAINE
  5. FARXIGA [Suspect]
     Active Substance: DAPAGLIFLOZIN PROPANEDIOL
     Indication: Back pain
     Dates: start: 20181022, end: 20220408
  6. FARXIGA [Suspect]
     Active Substance: DAPAGLIFLOZIN PROPANEDIOL
     Indication: Arthralgia
  7. FARXIGA [Suspect]
     Active Substance: DAPAGLIFLOZIN PROPANEDIOL
     Indication: Arthralgia

REACTIONS (12)
  - Brief resolved unexplained event [None]
  - Hepatic steatosis [None]
  - Infection [None]
  - Cardiac disorder [None]
  - Ulcer [None]
  - Blood glucose increased [None]
  - Fungal infection [None]
  - Urinary tract infection [None]
  - Multi-organ disorder [None]
  - Hyperaldosteronism [None]
  - Anxiety [None]
  - Dyspnoea [None]
